FAERS Safety Report 8565586-4 (Version None)
Quarter: 2012Q3

REPORT INFORMATION
  Report Type: 
  Country: None (occurrence: None)
  Receive Date: 20120803
  Receipt Date: 20120723
  Transmission Date: 20120928
  Serious: Yes (Other)
  Sender: FDA-Public Use
  Company Number: US-PFIZER INC-2011204403

PATIENT
  Sex: Female

DRUGS (8)
  1. ATENOLOL [Suspect]
     Dosage: UNK
     Route: 048
  2. FUROSEMIDE [Suspect]
     Dosage: UNK
     Route: 065
  3. ZOLOFT [Suspect]
     Dosage: UNK
     Route: 065
  4. NEXIUM [Suspect]
     Dosage: UNK
     Route: 048
  5. CRESTOR [Suspect]
     Dosage: UNK
     Route: 048
  6. LISINOPRIL [Suspect]
     Dosage: UNK
     Route: 048
  7. AMITRIPTYLINE HCL [Suspect]
     Dosage: UNK
     Route: 065
  8. NAMENDA [Concomitant]

REACTIONS (8)
  - CEREBROVASCULAR ACCIDENT [None]
  - MALAISE [None]
  - MEMORY IMPAIRMENT [None]
  - ADVERSE EVENT [None]
  - HEAD INJURY [None]
  - DEMENTIA [None]
  - FALL [None]
  - CEREBRAL HAEMORRHAGE [None]
